FAERS Safety Report 5374090-6 (Version None)
Quarter: 2007Q2

REPORT INFORMATION
  Report Type: 
  Country: None (occurrence: None)
  Receive Date: 20070627
  Receipt Date: 20070614
  Transmission Date: 20071010
  Serious: Yes (Other)
  Sender: FDA-Public Use
  Company Number: A-US2007-14996

PATIENT
  Age: 23 Year
  Sex: Female
  Weight: 59 kg

DRUGS (3)
  1. VENTAVIS [Suspect]
     Indication: PULMONARY HYPERTENSION
     Dosage: 2.5 UG X 6 TIMES DAILY, RESPIRATORY
     Route: 055
     Dates: start: 20070405, end: 20070407
  2. ASPIRIN [Concomitant]
  3. ADVIL LIQUI-GELS [Concomitant]

REACTIONS (4)
  - FLUSHING [None]
  - HEADACHE [None]
  - NAUSEA [None]
  - VENTRICULAR TACHYCARDIA [None]
